FAERS Safety Report 8021570-0 (Version None)
Quarter: 2012Q1

REPORT INFORMATION
  Report Type: 
  Country: None (occurrence: None)
  Receive Date: 20120104
  Receipt Date: 20111227
  Transmission Date: 20120608
  Serious: Yes (Other)
  Sender: FDA-Public Use
  Company Number: US-BAYER-2011-050902

PATIENT
  Sex: Female
  Weight: 58.957 kg

DRUGS (5)
  1. YAZ [Suspect]
     Indication: CONTRACEPTION
     Dosage: UNK
     Dates: start: 20060901, end: 20090901
  2. ALPRAZOLAM [Concomitant]
     Indication: ANXIETY
     Dosage: UNK
     Dates: start: 20080801, end: 20091201
  3. PROAIR HFA [Concomitant]
     Dosage: UNK
     Dates: start: 20090301
  4. CLIMARA [Concomitant]
  5. MAXALT [Concomitant]
     Indication: MIGRAINE
     Dosage: UNK
     Dates: start: 20080801, end: 20090701

REACTIONS (8)
  - ABDOMINAL DISCOMFORT [None]
  - GALLBLADDER DISORDER [None]
  - PAIN [None]
  - CHOLECYSTITIS CHRONIC [None]
  - ANHEDONIA [None]
  - INJURY [None]
  - DEFORMITY [None]
  - ANXIETY [None]
